FAERS Safety Report 10308337 (Version 3)
Quarter: 2014Q3

REPORT INFORMATION
  Report Type: Spontaneous
  Country: ES (occurrence: None)
  Receive Date: 20140630
  Receipt Date: 20140730
  Transmission Date: 20150326
  Serious: Yes (Other)
  Sender: FDA-Public Use
  Company Number: GAM-211-14-ES

PATIENT
  Age: 51 Year
  Sex: Female

DRUGS (6)
  1. OCTAGAMOCTA [Suspect]
     Active Substance: HUMAN IMMUNOGLOBULIN G
     Indication: POLYNEUROPATHY
     Dosage: (NOT OTHERWISE SPECIFIED)
     Route: 042
     Dates: start: 20140429, end: 20140503
  2. OMEPRAZOLE. [Concomitant]
     Active Substance: OMEPRAZOLE
  3. METAMIZOLE [Concomitant]
     Active Substance: METAMIZOLE
  4. ETORICOXIB [Concomitant]
     Active Substance: ETORICOXIB
  5. LORAZEPAM. [Concomitant]
     Active Substance: LORAZEPAM
  6. ENOXAPARIN SODIUM. [Concomitant]
     Active Substance: ENOXAPARIN SODIUM

REACTIONS (1)
  - Thrombophlebitis [None]

NARRATIVE: CASE EVENT DATE: 20140502
